FAERS Safety Report 10094710 (Version 1)
Quarter: 2014Q2

REPORT INFORMATION
  Report Type: Spontaneous
  Country: US (occurrence: None)
  Receive Date: 20140421
  Receipt Date: 20140421
  Transmission Date: 20141212
  Serious: Yes (Life-Threatening, Hospitalization)
  Sender: FDA-Public Use
  Company Number: None

PATIENT
  Age: 36 Year
  Sex: Female
  Weight: 125 kg

DRUGS (15)
  1. RIVAROXABAN [Suspect]
     Indication: PULMONARY EMBOLISM
     Route: 048
     Dates: start: 20140228, end: 20140417
  2. RIVAROXABAN [Suspect]
     Indication: ATRIAL FIBRILLATION
     Route: 048
     Dates: start: 20140228, end: 20140417
  3. RIVAROXABAN [Concomitant]
  4. ACETAMINOPHEN [Concomitant]
  5. FLUTICASONE/SALMETEROL INHALER [Concomitant]
  6. ALBUTEROL [Concomitant]
  7. AMITRIPTYLINE [Concomitant]
  8. DIPHENHYDRAMINE [Concomitant]
  9. DILTIAZEM [Concomitant]
  10. FLUTICASONE NASAL SPRAY [Concomitant]
  11. FUROSEMIDE [Concomitant]
  12. MELATONIN [Concomitant]
  13. METOPROLOL SUCCINATE [Concomitant]
  14. SERTRALINE [Concomitant]
  15. TRAMADOL [Concomitant]

REACTIONS (3)
  - Haemorrhage intracranial [None]
  - Headache [None]
  - Oxygen saturation decreased [None]
